FAERS Safety Report 17695550 (Version 1)
Quarter: 2020Q2

REPORT INFORMATION
  Report Type: Spontaneous
  Country: CA (occurrence: CA)
  Receive Date: 20200422
  Receipt Date: 20200422
  Transmission Date: 20200714
  Serious: Yes (Hospitalization, Other)
  Sender: FDA-Public Use
  Company Number: CA-AUROBINDO-AUR-APL-2020-018854

PATIENT
  Age: 38 Year
  Sex: Female

DRUGS (2)
  1. CARBAMAZEPINE. [Suspect]
     Active Substance: CARBAMAZEPINE
     Indication: SEIZURE
     Dosage: UNK
     Route: 065
  2. LEVETIRACETAM. [Suspect]
     Active Substance: LEVETIRACETAM
     Indication: SEIZURE
     Dosage: UNK
     Route: 065

REACTIONS (11)
  - Dementia [Unknown]
  - Learning disorder [Unknown]
  - Myalgia [Unknown]
  - Delusion [Unknown]
  - Impaired self-care [Unknown]
  - Drug withdrawal syndrome [Unknown]
  - Hallucination, auditory [Unknown]
  - Rhabdomyolysis [Unknown]
  - Blood creatine phosphokinase increased [Unknown]
  - Psychotic symptom [Unknown]
  - Disorganised speech [Unknown]
